FAERS Safety Report 25482669 (Version 1)
Quarter: 2025Q2

REPORT INFORMATION
  Report Type: Spontaneous
  Country: US (occurrence: US)
  Receive Date: 20250626
  Receipt Date: 20250626
  Transmission Date: 20250716
  Serious: No
  Sender: NOVARTIS
  Company Number: US-SANDOZ-SDZ2025US043676

PATIENT
  Sex: Female

DRUGS (1)
  1. TOBRAMYCIN [Suspect]
     Active Substance: TOBRAMYCIN
     Indication: Mycobacterium abscessus infection
     Route: 065

REACTIONS (1)
  - Drug ineffective [Unknown]
